FAERS Safety Report 4632294-1 (Version None)
Quarter: 2005Q2

REPORT INFORMATION
  Report Type: 
  Country: None (occurrence: None)
  Receive Date: 20050411
  Receipt Date: 20050329
  Transmission Date: 20051028
  Serious: Yes (Hospitalization)
  Sender: FDA-Public Use
  Company Number: JP-ROCHE-400731

PATIENT
  Age: 66 Year
  Sex: Female

DRUGS (5)
  1. TAMIFLU [Suspect]
     Indication: INFLUENZA
     Route: 048
     Dates: start: 20050322, end: 20050324
  2. MARZULENE [Concomitant]
     Route: 048
     Dates: start: 20050322
  3. INDOMETHACIN [Concomitant]
     Route: 054
     Dates: start: 20050322, end: 20050322
  4. LACTATED RINGER'S [Concomitant]
     Route: 041
     Dates: start: 20050223, end: 20050223
  5. PRIMPERAN TAB [Concomitant]
     Route: 041
     Dates: start: 20050323, end: 20050323

REACTIONS (2)
  - DEPRESSED LEVEL OF CONSCIOUSNESS [None]
  - HYPOAESTHESIA [None]
